FAERS Safety Report 7541657-6 (Version None)
Quarter: 2011Q2

REPORT INFORMATION
  Report Type: 
  Country: None (occurrence: None)
  Receive Date: 20110613
  Receipt Date: 20110601
  Transmission Date: 20111010
  Serious: No
  Sender: FDA-Public Use
  Company Number: US-JNJFOC-20110601888

PATIENT
  Sex: Female
  Weight: 90.72 kg

DRUGS (4)
  1. FENTANYL-100 [Suspect]
     Indication: BACK PAIN
     Dosage: NDC#0781-7242-55
     Route: 062
     Dates: start: 20100101, end: 20110501
  2. LYRICA [Concomitant]
     Indication: FIBROMYALGIA
     Route: 048
  3. DIOVAN [Concomitant]
     Indication: HYPERTENSION
     Route: 048
  4. ROXICODONE [Concomitant]
     Indication: BREAKTHROUGH PAIN
     Route: 048

REACTIONS (2)
  - DRUG DOSE OMISSION [None]
  - PAIN [None]
